FAERS Safety Report 5764351-0 (Version None)
Quarter: 2008Q2

REPORT INFORMATION
  Report Type: 
  Country: None (occurrence: None)
  Receive Date: 20080610
  Receipt Date: 20080604
  Transmission Date: 20081010
  Serious: Yes (Hospitalization)
  Sender: FDA-Public Use
  Company Number: BE-BOEHRINGER INGELHEIM GMBH, GERMANY-2008-BL-00125BL

PATIENT
  Sex: Female

DRUGS (3)
  1. VIRAMUNE [Suspect]
     Indication: HUMAN IMMUNODEFICIENCY VIRUS TRANSMISSION
     Route: 064
     Dates: start: 20080202, end: 20080216
  2. VIRAMUNE [Suspect]
     Route: 064
     Dates: start: 20080216, end: 20080221
  3. COMBIVIR [Concomitant]
     Route: 064
     Dates: start: 20080202, end: 20080221

REACTIONS (2)
  - PREMATURE BABY [None]
  - SMALL FOR DATES BABY [None]
